FAERS Safety Report 5424409-2 (Version None)
Quarter: 2007Q3

REPORT INFORMATION
  Report Type: 
  Country: None (occurrence: None)
  Receive Date: 20070731
  Receipt Date: 20070404
  Transmission Date: 20080115
  Serious: No
  Sender: FDA-Public Use
  Company Number: US200704000878

PATIENT
  Sex: Male

DRUGS (1)
  1. BYETTA [Suspect]
     Indication: DIABETES MELLITUS
     Dosage: 5 UG,      10 UG,

REACTIONS (5)
  - CONSTIPATION [None]
  - DYSPEPSIA [None]
  - GASTRIC DISORDER [None]
  - IMPAIRED GASTRIC EMPTYING [None]
  - INTESTINAL FUNCTIONAL DISORDER [None]
